FAERS Safety Report 9575606 (Version 1)
Quarter: 2013Q4

REPORT INFORMATION
  Report Type: Spontaneous
  Country: US (occurrence: US)
  Receive Date: 20131001
  Receipt Date: 20131001
  Transmission Date: 20140711
  Serious: No
  Sender: FDA-Public Use
  Company Number: US-AMGEN-USASP2012083823

PATIENT
  Age: 52 Year
  Sex: Female

DRUGS (3)
  1. ENBREL [Suspect]
     Indication: RHEUMATOID ARTHRITIS
     Dosage: 50 MG, 1/WEEKLY
     Dates: start: 20121221
  2. PREDNISONE                         /00044702/ [Concomitant]
     Dosage: 5 MG, TWICE DAILY
     Dates: start: 2012
  3. PLAQUENIL                          /00072602/ [Concomitant]
     Dosage: 200 MG, TWICE DAILY
     Dates: start: 2012

REACTIONS (2)
  - Muscle tightness [Not Recovered/Not Resolved]
  - Musculoskeletal discomfort [Not Recovered/Not Resolved]
